FAERS Safety Report 7980294-6 (Version None)
Quarter: 2011Q4

REPORT INFORMATION
  Report Type: 
  Country: None (occurrence: None)
  Receive Date: 20111212
  Receipt Date: 20111130
  Transmission Date: 20120403
  Serious: Yes (Hospitalization)
  Sender: FDA-Public Use
  Company Number: 1000025869

PATIENT
  Age: 23 Year
  Sex: Male
  Weight: 78.6 kg

DRUGS (25)
  1. ATIVAN [Suspect]
     Indication: NAUSEA
     Dates: start: 20110311
  2. NEUPOGEN [Concomitant]
  3. COLACE (DOCUSATE SODIUM) (DOCUSATE SODIUM) [Concomitant]
  4. MEPRON (ATOVAQUONE) (SUSPENSION) (ATOVAQUONE) [Concomitant]
  5. MARINOL [Suspect]
     Indication: NAUSEA
     Dates: start: 20110404, end: 20111016
  6. LIDOCAINE (LIDOCAINE) (GEL) (LIDOCAINE) [Concomitant]
  7. POLYETHYLENE GLYCOL (MACROGOL) (MACROGOL) [Concomitant]
  8. SCOPOLAMINE [Suspect]
     Indication: NAUSEA
     Dates: start: 20111006, end: 20111014
  9. DEMEROL (PETHIDINE HYDROCHLORIDE) (PETHIDINE HYDROCHLORIDE) [Concomitant]
  10. CONCERTA (METHYLPHENIDATE HYDROCHLORIDE) (METHYLPHENIDATE HYDROCHLORID [Concomitant]
  11. HYDROCORTISONE/LIDOCAINE (HYDORCORTISONE, LIDOCAINE) (CREAM) (HYDROCOR [Concomitant]
  12. LORATADINE (LORATADINE) (LORATADINE) [Concomitant]
  13. FENTANYL-100 [Suspect]
     Indication: PAIN
     Dates: start: 20110919, end: 20111017
  14. DILAUDID [Suspect]
     Indication: PAIN
     Dates: start: 20110628, end: 20111016
  15. FLUCONAZOLE [Concomitant]
  16. HEPARIN [Concomitant]
  17. SENNOSIDES (A + B) (SENNOSIDES (A + B)) (SENNOSIDES (A + B)) [Concomitant]
  18. NYSTATIN (NYSTATIN) (NYSTATIN) [Concomitant]
  19. CELEXA [Suspect]
     Indication: DEPRESSION
     Dates: start: 20110331
  20. KYTRIL [Suspect]
     Indication: NAUSEA
     Dates: start: 20111006
  21. FAMVIR (FAMCICLOVIR) (FAMCICLOVIR) [Concomitant]
  22. OMEPRAZOLE [Concomitant]
  23. CIPROFLOXACIN [Concomitant]
  24. MORPHINE SULFATE [Concomitant]
  25. CHLORHEXIDINE (CHLORHEXIDINE) (CHLORHEXIDINE) [Concomitant]

REACTIONS (6)
  - CONFUSIONAL STATE [None]
  - FEBRILE NEUTROPENIA [None]
  - ABDOMINAL PAIN [None]
  - DYSKINESIA [None]
  - HALLUCINATION [None]
  - PNEUMONIA FUNGAL [None]
